FAERS Safety Report 17015550 (Version 1)
Quarter: 2019Q4

REPORT INFORMATION
  Report Type: Spontaneous
  Country: CA (occurrence: CA)
  Receive Date: 20191111
  Receipt Date: 20191111
  Transmission Date: 20200122
  Serious: Yes (Hospitalization)
  Sender: FDA-Public Use
  Company Number: CA-PFIZER INC-2019482310

PATIENT
  Age: 50 Year
  Sex: Female
  Weight: 99 kg

DRUGS (1)
  1. GABAPENTIN. [Suspect]
     Active Substance: GABAPENTIN
     Indication: EPICONDYLITIS
     Dosage: 300 MG, UNK
     Route: 048

REACTIONS (5)
  - Hypoaesthesia [Recovered/Resolved]
  - Tremor [Recovered/Resolved]
  - Off label use [Unknown]
  - Myoclonus [Recovered/Resolved]
  - Product use in unapproved indication [Unknown]
